FAERS Safety Report 12528717 (Version 1)
Quarter: 2016Q3

REPORT INFORMATION
  Report Type: Spontaneous
  Country: US (occurrence: US)
  Receive Date: 20160705
  Receipt Date: 20160705
  Transmission Date: 20161109
  Serious: Yes (Other)
  Sender: FDA-Public Use
  Company Number: US-SAOL THERAPEUTICS-2016SAO00037

PATIENT
  Sex: Male
  Weight: 38.95 kg

DRUGS (1)
  1. LIORESAL [Suspect]
     Active Substance: BACLOFEN
     Dosage: 250 ?G, 1X/DAY
     Route: 037

REACTIONS (1)
  - Skin atrophy [Recovered/Resolved]
